FAERS Safety Report 6368468-1 (Version None)
Quarter: 2009Q3

REPORT INFORMATION
  Report Type: 
  Country: None (occurrence: None)
  Receive Date: 20090922
  Receipt Date: 20090917
  Transmission Date: 20100115
  Serious: Yes (Death)
  Sender: FDA-Public Use
  Company Number: A0787381A

PATIENT
  Age: 46 Year
  Sex: Male

DRUGS (8)
  1. ARIXTRA [Suspect]
     Indication: DRUG USE FOR UNKNOWN INDICATION
     Dosage: 7.5MG PER DAY
     Route: 058
     Dates: start: 20090501
  2. AMOXICILLIN [Concomitant]
  3. FOLIC ACID [Concomitant]
  4. HYDROCODONE [Concomitant]
  5. MEGACE [Concomitant]
  6. PHENERGAN [Concomitant]
  7. INFUSION [Concomitant]
  8. CAMPATH [Concomitant]

REACTIONS (2)
  - CARDIAC ARREST [None]
  - LYMPHOMA [None]
